FAERS Safety Report 9205963 (Version 1)
Quarter: 2013Q2

REPORT INFORMATION
  Report Type: Report from Study
  Country: CA (occurrence: CA)
  Receive Date: 20130403
  Receipt Date: 20130403
  Transmission Date: 20140414
  Serious: Yes (Hospitalization)
  Sender: FDA-Public Use
  Company Number: CA-JNJFOC-20130317056

PATIENT
  Age: 79 Year
  Sex: Female

DRUGS (14)
  1. SIMPONI [Suspect]
     Indication: RHEUMATOID ARTHRITIS
     Dates: start: 20130125
  2. METHOTREXATE [Concomitant]
  3. VENLAFAXINE [Concomitant]
  4. QUININE [Concomitant]
  5. CALCIUM [Concomitant]
  6. ACETAMINOPHEN [Concomitant]
  7. CORTISONE [Concomitant]
  8. FOLIC ACID [Concomitant]
  9. SULCRATE [Concomitant]
  10. DOMPERIDONE [Concomitant]
  11. PANTOLOC [Concomitant]
  12. AMITRIPTYLINE [Concomitant]
  13. LYRICA [Concomitant]
  14. SYNTHROID [Concomitant]

REACTIONS (2)
  - Pneumonia [Recovering/Resolving]
  - Blood pressure abnormal [Recovering/Resolving]
